FAERS Safety Report 6577778-4 (Version None)
Quarter: 2010Q1

REPORT INFORMATION
  Report Type: 
  Country: None (occurrence: None)
  Receive Date: 20100211
  Receipt Date: 20100203
  Transmission Date: 20100710
  Serious: Yes (Hospitalization)
  Sender: FDA-Public Use
  Company Number: AU-ROCHE-665784

PATIENT
  Sex: Female

DRUGS (7)
  1. ACTEMRA [Suspect]
     Route: 042
     Dates: start: 20091001, end: 20091101
  2. PREDNISOLONE [Concomitant]
     Dosage: HIGH DOSE
  3. PREDNISONE [Concomitant]
     Dosage: START DATE: YEARS
     Route: 048
  4. METHOTREXATE [Concomitant]
     Dosage: START DATE: YEARS
     Route: 048
  5. FOLIC ACID [Concomitant]
     Dosage: START DATE: YEARS; DRUG NAME: FOLATE
     Route: 048
  6. ESOMEPRAZOLE [Concomitant]
     Indication: ILL-DEFINED DISORDER
  7. METFORMIN HCL [Concomitant]

REACTIONS (1)
  - PANCREATITIS ACUTE [None]
